FAERS Safety Report 8738294 (Version 2)
Quarter: 2013Q4

REPORT INFORMATION
  Report Type: Spontaneous
  Country: US (occurrence: US)
  Receive Date: 20120823
  Receipt Date: 20131101
  Transmission Date: 20140711
  Serious: No
  Sender: FDA-Public Use
  Company Number: US-009507513-1207USA012083

PATIENT
  Age: 89 Year
  Sex: Female

DRUGS (8)
  1. DULERA [Suspect]
     Dosage: 1 DF, BID
     Route: 055
  2. VENTOLIN (ALBUTEROL) [Suspect]
     Route: 055
  3. ALPRAZOLAM [Concomitant]
  4. GLIPIZIDE [Concomitant]
  5. DIOVAN [Concomitant]
  6. LEVOTHYROXINE SODIUM [Concomitant]
  7. PLAVIX [Concomitant]
  8. LIBRIUM [Concomitant]

REACTIONS (3)
  - Vision blurred [Unknown]
  - Malaise [Unknown]
  - Off label use [Unknown]
